FAERS Safety Report 7364389-6 (Version None)
Quarter: 2011Q1

REPORT INFORMATION
  Report Type: 
  Country: None (occurrence: None)
  Receive Date: 20110321
  Receipt Date: 20110309
  Transmission Date: 20110831
  Serious: Yes (Other)
  Sender: FDA-Public Use
  Company Number: BE-JNJFOC-20110306258

PATIENT
  Age: 77 Year
  Sex: Male

DRUGS (3)
  1. OFLOXACIN [Suspect]
     Indication: PNEUMONIA BACTERIAL
     Route: 065
  2. ITRACONAZOLE [Suspect]
     Indication: ASPERGILLOMA
     Dosage: FOR 5 DAYS
     Route: 065
  3. ITRACONAZOLE [Suspect]
     Route: 065

REACTIONS (4)
  - VANISHING BILE DUCT SYNDROME [None]
  - HEPATITIS [None]
  - HEPATOTOXICITY [None]
  - HEPATOBILIARY DISEASE [None]
